FAERS Safety Report 8843819 (Version 1)
Quarter: 2012Q4

REPORT INFORMATION
  Report Type: 
  Country: US (occurrence: US)
  Receive Date: 20121016
  Receipt Date: 20121016
  Transmission Date: 20130627
  Serious: Yes (Hospitalization)
  Sender: FDA-Public Use
  Company Number: US-TEVA-364357USA

PATIENT
  Sex: Male
  Weight: 90.8 kg

DRUGS (2)
  1. PROAIR HFA [Suspect]
     Indication: CHRONIC OBSTRUCTIVE PULMONARY DISEASE
     Dosage: 270 Microgram Daily;
     Route: 055
  2. PROAIR HFA [Suspect]
     Route: 055

REACTIONS (1)
  - Renal artery occlusion [Recovered/Resolved]
